FAERS Safety Report 7714107-4 (Version None)
Quarter: 2011Q3

REPORT INFORMATION
  Report Type: 
  Country: None (occurrence: None)
  Receive Date: 20110828
  Receipt Date: 20110811
  Transmission Date: 20111222
  Serious: No
  Sender: FDA-Public Use
  Company Number: US-ROXANE LABORATORIES, INC.-2011-RO-00792RO

PATIENT
  Sex: Female

DRUGS (1)
  1. OXYMORPHONE HYDROCHLORIDE [Suspect]

REACTIONS (1)
  - DRUG INEFFECTIVE [None]
